FAERS Safety Report 6669692-0 (Version None)
Quarter: 2010Q2

REPORT INFORMATION
  Report Type: 
  Country: None (occurrence: None)
  Receive Date: 20100406
  Receipt Date: 20100401
  Transmission Date: 20101027
  Serious: Yes (Death)
  Sender: FDA-Public Use
  Company Number: US-GILEAD-2010-0028277

PATIENT
  Sex: Male
  Weight: 49.94 kg

DRUGS (10)
  1. LETAIRIS [Suspect]
     Indication: PULMONARY ARTERIAL HYPERTENSION
     Route: 048
     Dates: start: 20100305
  2. BUMEX [Concomitant]
  3. PAXIL [Concomitant]
  4. ALLOPURINOL [Concomitant]
  5. AZITHROMYCIN [Concomitant]
  6. FAMOTIDINE [Concomitant]
  7. KLOR-CON [Concomitant]
  8. FLOMAX [Concomitant]
  9. SENSIPAR [Concomitant]
  10. ASPIRIN [Concomitant]

REACTIONS (1)
  - DEATH [None]
